FAERS Safety Report 5574865-4 (Version None)
Quarter: 2007Q4

REPORT INFORMATION
  Report Type: 
  Country: None (occurrence: None)
  Receive Date: 20071227
  Receipt Date: 20071224
  Transmission Date: 20080405
  Serious: Yes (Other)
  Sender: FDA-Public Use
  Company Number: NL-BRISTOL-MYERS SQUIBB COMPANY-14024392

PATIENT
  Age: 80 Year
  Sex: Male

DRUGS (3)
  1. AMPHOTERICIN B [Suspect]
     Route: 061
  2. POLYMYCIN B SULFATE [Suspect]
     Route: 061
  3. TOBRAMYCIN [Suspect]
     Route: 061

REACTIONS (1)
  - OESOPHAGEAL OBSTRUCTION [None]
